FAERS Safety Report 4835333-8 (Version None)
Quarter: 2005Q4

REPORT INFORMATION
  Report Type: 
  Country: None (occurrence: None)
  Receive Date: 20051118
  Receipt Date: 20051107
  Transmission Date: 20060501
  Serious: Yes (Hospitalization, Other)
  Sender: FDA-Public Use
  Company Number: 12858

PATIENT
  Age: 1 Month
  Sex: Female

DRUGS (2)
  1. ACYCLOVIR [Suspect]
     Indication: HERPES SIMPLEX
  2. ACYCLOVIR [Suspect]
     Indication: HERPES SIMPLEX

REACTIONS (6)
  - CONVULSION [None]
  - DEVELOPMENTAL DELAY [None]
  - DISEASE RECURRENCE [None]
  - DRUG INEFFECTIVE [None]
  - ENCEPHALITIS HERPES [None]
  - NEONATAL MUCOCUTANEOUS HERPES SIMPLEX [None]
